FAERS Safety Report 8506532-9 (Version None)
Quarter: 2012Q3

REPORT INFORMATION
  Report Type: 
  Country: None (occurrence: None)
  Receive Date: 20120712
  Receipt Date: 20120508
  Transmission Date: 20120928
  Serious: No
  Sender: FDA-Public Use
  Company Number: US-GLAXOSMITHKLINE-A0976811A

PATIENT
  Sex: Male

DRUGS (5)
  1. FISH OIL [Concomitant]
  2. VITAMIN B-12 [Concomitant]
  3. JALYN [Suspect]
     Indication: PROSTATOMEGALY
     Dosage: 1CAP PER DAY
     Route: 048
     Dates: start: 20110901
  4. VITAMIN A [Concomitant]
  5. TRIAMCINOLONE OINTMENT [Concomitant]

REACTIONS (5)
  - MYALGIA [None]
  - MUSCLE SPASMS [None]
  - POLLAKIURIA [None]
  - DRUG INEFFECTIVE [None]
  - BONE PAIN [None]
